FAERS Safety Report 23185750 (Version 1)
Quarter: 2023Q4

REPORT INFORMATION
  Report Type: Spontaneous
  Country: CN (occurrence: CN)
  Receive Date: 20231115
  Receipt Date: 20231115
  Transmission Date: 20240110
  Serious: Yes (Hospitalization, Other)
  Sender: FDA-Public Use
  Company Number: None

PATIENT
  Age: 40 Year
  Sex: Female

DRUGS (3)
  1. IFOSFAMIDE [Suspect]
     Active Substance: IFOSFAMIDE
     Indication: Uterine cancer
     Dosage: 2 G, ONE TIME IN ONE DAY, D1-D3
     Route: 041
     Dates: start: 20230112, end: 20230114
  2. MESNA [Suspect]
     Active Substance: MESNA
     Indication: Uterine cancer
     Dosage: 0.4 G, ONE TIME IN ONE DAY
     Route: 041
     Dates: start: 20230112, end: 20230112
  3. DOCETAXEL [Suspect]
     Active Substance: DOCETAXEL\DOCETAXEL ANHYDROUS
     Indication: Uterine cancer
     Dosage: 120 MG, ONE TIME IN ONE DAY, D1
     Route: 041
     Dates: start: 20230112, end: 20230112

REACTIONS (1)
  - Myelosuppression [Unknown]

NARRATIVE: CASE EVENT DATE: 20230115
